FAERS Safety Report 15800253 (Version 7)
Quarter: 2019Q4

REPORT INFORMATION
  Report Type: Report from Study
  Country: US (occurrence: US)
  Receive Date: 20190108
  Receipt Date: 20191107
  Transmission Date: 20200122
  Serious: Yes (Hospitalization, Other)
  Sender: FDA-Public Use
  Company Number: US-TESAROUBC-2018-TSO2127-US

PATIENT
  Age: 71 Year
  Sex: Female

DRUGS (11)
  1. NIRAPARIB [Suspect]
     Active Substance: NIRAPARIB
     Indication: OVARIAN CANCER
     Dosage: 300 MG, QD
     Route: 048
     Dates: start: 20181113, end: 20190401
  2. NIRAPARIB [Suspect]
     Active Substance: NIRAPARIB
     Dosage: 200 MG, QD
     Route: 048
  3. SYNTHROID [Concomitant]
     Active Substance: LEVOTHYROXINE SODIUM
     Indication: PRODUCT USED FOR UNKNOWN INDICATION
  4. PEPCID [Concomitant]
     Active Substance: FAMOTIDINE
     Indication: PRODUCT USED FOR UNKNOWN INDICATION
  5. MAGNESIUM [Concomitant]
     Active Substance: MAGNESIUM
  6. DOXYCYCLINE. [Concomitant]
     Active Substance: DOXYCYCLINE
     Indication: PRODUCT USED FOR UNKNOWN INDICATION
     Route: 065
  7. ENOXAPARIN SODIUM. [Concomitant]
     Active Substance: ENOXAPARIN SODIUM
     Indication: PRODUCT USED FOR UNKNOWN INDICATION
     Dosage: UNK
  8. PROCHLORPERAZINE MALEATE. [Concomitant]
     Active Substance: PROCHLORPERAZINE MALEATE
     Indication: PRODUCT USED FOR UNKNOWN INDICATION
  9. PREVACID [Concomitant]
     Active Substance: LANSOPRAZOLE
     Indication: PRODUCT USED FOR UNKNOWN INDICATION
     Dosage: UNK
  10. NIRAPARIB [Suspect]
     Active Substance: NIRAPARIB
     Dosage: 300 MG, DAILY
     Dates: start: 20190513, end: 20190923
  11. NIRAPARIB [Suspect]
     Active Substance: NIRAPARIB
     Dosage: 200 MG, QD
     Route: 048
     Dates: start: 2019

REACTIONS (25)
  - Thyroid hormones increased [Recovered/Resolved]
  - Nausea [Recovered/Resolved]
  - Dyspnoea [Unknown]
  - Heart rate irregular [Unknown]
  - Blood pressure increased [Unknown]
  - Product dose omission [Unknown]
  - Atrial flutter [Unknown]
  - Bile duct stone [Unknown]
  - Gallbladder disorder [Unknown]
  - Alopecia [Unknown]
  - Blood count abnormal [Unknown]
  - Unevaluable event [Unknown]
  - Myalgia [Recovered/Resolved]
  - Headache [Unknown]
  - Anaemia [Unknown]
  - Pyrexia [Unknown]
  - Salivary hypersecretion [Unknown]
  - Hernia [Unknown]
  - Speech disorder [Unknown]
  - Blood magnesium decreased [Recovered/Resolved]
  - Cough [Not Recovered/Not Resolved]
  - Psychomotor hyperactivity [Unknown]
  - Drug tolerance [Unknown]
  - Dyspepsia [Unknown]
  - Constipation [Recovered/Resolved]

NARRATIVE: CASE EVENT DATE: 20190513
